FAERS Safety Report 19471543 (Version 1)
Quarter: 2021Q2

REPORT INFORMATION
  Report Type: Spontaneous
  Country: US (occurrence: US)
  Receive Date: 20210628
  Receipt Date: 20210628
  Transmission Date: 20210717
  Serious: Yes (Hospitalization)
  Sender: FDA-Public Use
  Company Number: None

PATIENT
  Age: 68 Year

DRUGS (1)
  1. SANDOSTATIN [Suspect]
     Active Substance: OCTREOTIDE ACETATE
     Indication: HYPERKINETIC HEART SYNDROME
     Route: 030
     Dates: start: 20200204

REACTIONS (1)
  - Staphylococcal infection [None]
